FAERS Safety Report 21688968 (Version 2)
Quarter: 2023Q2

REPORT INFORMATION
  Report Type: Report from Study
  Country: US (occurrence: US)
  Receive Date: 20221206
  Receipt Date: 20230411
  Transmission Date: 20230722
  Serious: No
  Sender: FDA-Public Use
  Company Number: US-BRISTOL-MYERS SQUIBB COMPANY-2022-148651

PATIENT
  Age: 51 Year
  Sex: Female

DRUGS (1)
  1. SOTYKTU [Suspect]
     Active Substance: DEUCRAVACITINIB
     Indication: Psoriasis
     Route: 048

REACTIONS (5)
  - Stomatitis [Unknown]
  - Blister [Unknown]
  - Oral disorder [Unknown]
  - Nausea [Unknown]
  - Rash [Unknown]
